FAERS Safety Report 8571741-X (Version None)
Quarter: 2012Q2

REPORT INFORMATION
  Report Type: 
  Country: None (occurrence: None)
  Receive Date: 20120418
  Receipt Date: 20090515
  Transmission Date: 20120825
  Serious: Yes (Other)
  Sender: FDA-Public Use
  Company Number: PHEH2009US04959

PATIENT
  Sex: Male

DRUGS (1)
  1. DIOVAN HCT [Suspect]
     Dosage: 160 MG VAL/25 MG HCTZ, ORAL
     Route: 048

REACTIONS (3)
  - HYPOTENSION [None]
  - SYNCOPE [None]
  - FATIGUE [None]
